FAERS Safety Report 7708395-8 (Version None)
Quarter: 2011Q3

REPORT INFORMATION
  Report Type: 
  Country: None (occurrence: None)
  Receive Date: 20110825
  Receipt Date: 20110816
  Transmission Date: 20111222
  Serious: Yes (Hospitalization)
  Sender: FDA-Public Use
  Company Number: DE-PAR PHARMACEUTICAL, INC-2011SCPR003179

PATIENT

DRUGS (2)
  1. DOXAZOSIN MESYLATE [Suspect]
     Indication: HYPERTENSION
     Dosage: UNK, UNKNOWN
     Route: 065
  2. VERAPAMIL [Suspect]
     Indication: HYPERTENSION
     Dosage: UNK, UNKNOWN
     Route: 065

REACTIONS (6)
  - HYPERTENSION [None]
  - OEDEMA [None]
  - NOCTURIA [None]
  - TREMOR [None]
  - PALPITATIONS [None]
  - HEADACHE [None]
